FAERS Safety Report 25548032 (Version 1)
Quarter: 2025Q3

REPORT INFORMATION
  Report Type: Spontaneous
  Country: IN (occurrence: IN)
  Receive Date: 20250714
  Receipt Date: 20250714
  Transmission Date: 20251021
  Serious: Yes (Hospitalization)
  Sender: ACCORD
  Company Number: IN-MLMSERVICE-20250627-PI558646-00275-1

PATIENT
  Age: 96 Year
  Sex: Male

DRUGS (29)
  1. QUETIAPINE [Suspect]
     Active Substance: QUETIAPINE
     Indication: Hallucination, visual
     Dates: start: 202311, end: 202311
  2. TRIHEXYPHENIDYL [Suspect]
     Active Substance: TRIHEXYPHENIDYL
     Indication: Tremor
     Dates: start: 202311, end: 202404
  3. DONEPEZIL [Concomitant]
     Active Substance: DONEPEZIL
     Indication: Hallucination, visual
     Dates: start: 202311, end: 202404
  4. DULOXETINE [Concomitant]
     Active Substance: DULOXETINE
     Indication: Peripheral coldness
     Dates: start: 202308, end: 202404
  5. DUTASTERIDE\TAMSULOSIN HYDROCHLORIDE [Concomitant]
     Active Substance: DUTASTERIDE\TAMSULOSIN HYDROCHLORIDE
     Dates: start: 2023, end: 202404
  6. LINAGLIPTIN [Concomitant]
     Active Substance: LINAGLIPTIN
     Dates: start: 2023, end: 202404
  7. MELATONIN [Concomitant]
     Active Substance: MELATONIN
     Indication: Neuropsychological symptoms
     Route: 048
     Dates: start: 202311, end: 202404
  8. MEMANTINE [Concomitant]
     Active Substance: MEMANTINE
     Dates: start: 202311, end: 202404
  9. PREGABALIN [Concomitant]
     Active Substance: PREGABALIN
     Indication: Pain in extremity
     Route: 048
     Dates: start: 2009, end: 202404
  10. RASAGILINE MESYLATE [Concomitant]
     Active Substance: RASAGILINE MESYLATE
     Indication: Tremor
     Dates: start: 202311, end: 202404
  11. RISPERIDONE [Concomitant]
     Active Substance: RISPERIDONE
     Dates: start: 202312, end: 202403
  12. RIVASTIGMINE [Concomitant]
     Active Substance: RIVASTIGMINE
     Dates: end: 202404
  13. Torasemide, Spironolactone [Concomitant]
     Indication: Oedema peripheral
     Dates: start: 2022, end: 202404
  14. MELATONIN [Concomitant]
     Active Substance: MELATONIN
     Indication: Condition aggravated
     Route: 048
     Dates: start: 202311, end: 202404
  15. TRIHEXYPHENIDYL [Suspect]
     Active Substance: TRIHEXYPHENIDYL
     Indication: Speech disorder
     Dates: start: 202311, end: 202404
  16. QUETIAPINE [Suspect]
     Active Substance: QUETIAPINE
     Indication: Speech disorder
     Dates: start: 202311, end: 202312
  17. QUETIAPINE [Suspect]
     Active Substance: QUETIAPINE
     Indication: Insomnia
     Dates: start: 202311, end: 202312
  18. QUETIAPINE [Suspect]
     Active Substance: QUETIAPINE
     Indication: Speech disorder
     Dates: start: 202312, end: 202404
  19. QUETIAPINE [Suspect]
     Active Substance: QUETIAPINE
     Indication: Insomnia
     Dates: start: 202312, end: 202404
  20. DONEPEZIL [Concomitant]
     Active Substance: DONEPEZIL
     Indication: Insomnia
     Dates: start: 202311, end: 202404
  21. RASAGILINE MESYLATE [Concomitant]
     Active Substance: RASAGILINE MESYLATE
     Indication: Decreased gait velocity
     Dates: start: 202311, end: 202404
  22. RASAGILINE MESYLATE [Concomitant]
     Active Substance: RASAGILINE MESYLATE
     Indication: Speech disorder
     Dates: start: 202311, end: 202404
  23. MELATONIN [Concomitant]
     Active Substance: MELATONIN
     Indication: Insomnia
     Route: 048
     Dates: start: 202311, end: 202404
  24. QUETIAPINE [Suspect]
     Active Substance: QUETIAPINE
     Indication: Insomnia
     Dates: start: 202311, end: 202311
  25. QUETIAPINE [Suspect]
     Active Substance: QUETIAPINE
     Indication: Hallucination, visual
     Dates: start: 202311, end: 202312
  26. QUETIAPINE [Suspect]
     Active Substance: QUETIAPINE
     Indication: Hallucination, visual
     Dates: start: 202312, end: 202404
  27. QUETIAPINE [Suspect]
     Active Substance: QUETIAPINE
     Indication: Speech disorder
     Dates: start: 202311, end: 202311
  28. TRIHEXYPHENIDYL [Suspect]
     Active Substance: TRIHEXYPHENIDYL
     Indication: Decreased gait velocity
     Dates: start: 202311, end: 202404
  29. DONEPEZIL [Concomitant]
     Active Substance: DONEPEZIL
     Indication: Speech disorder
     Dates: start: 202311, end: 202404

REACTIONS (3)
  - Aphthous ulcer [Recovered/Resolved]
  - Delirium [Recovering/Resolving]
  - Dry mouth [Unknown]

NARRATIVE: CASE EVENT DATE: 20240101
